FAERS Safety Report 9055980 (Version 2)
Quarter: 2013Q4

REPORT INFORMATION
  Report Type: Spontaneous
  Country: JP (occurrence: JP)
  Receive Date: 20130205
  Receipt Date: 20131210
  Transmission Date: 20140711
  Serious: Yes (Death, Other)
  Sender: FDA-Public Use
  Company Number: PHHY2011JP117224

PATIENT
  Age: 74 Year
  Sex: Male

DRUGS (7)
  1. SANDIMMUN [Suspect]
     Indication: CORNEAL TRANSPLANT
     Dosage: 3 MG/KG, UNK
     Route: 042
  2. NEORAL [Suspect]
     Indication: PROPHYLAXIS AGAINST TRANSPLANT REJECTION
     Dosage: 5 MG/KG, DAILY
     Route: 048
  3. BETAMETHASONE [Suspect]
     Dosage: 2 MG, UNK
     Route: 057
  4. BETAMETHASONE [Suspect]
     Dosage: 8 MG, UNK
  5. EURASON [Suspect]
     Route: 047
  6. SANBETASON [Suspect]
     Route: 047
  7. CRAVIT [Concomitant]
     Route: 047

REACTIONS (2)
  - Death [Fatal]
  - Renal impairment [Recovered/Resolved]
